FAERS Safety Report 7527022-6 (Version None)
Quarter: 2011Q2

REPORT INFORMATION
  Report Type: 
  Country: None (occurrence: None)
  Receive Date: 20110606
  Receipt Date: 20110527
  Transmission Date: 20111010
  Serious: Yes (Hospitalization)
  Sender: FDA-Public Use
  Company Number: BR-ASTRAZENECA-2010SE33843

PATIENT
  Age: 73 Year
  Sex: Male

DRUGS (3)
  1. METOPROLOL SUCCINATE [Suspect]
     Indication: HYPERTENSION
     Route: 048
     Dates: start: 20030101, end: 20060101
  2. SELOPRESS ZOK [Suspect]
     Indication: HYPERTENSION
     Route: 048
     Dates: start: 20060101
  3. CRESTOR [Suspect]
     Indication: HYPERCHOLESTEROLAEMIA
     Route: 048
     Dates: start: 20080101

REACTIONS (5)
  - CATHETERISATION CARDIAC [None]
  - STENT PLACEMENT [None]
  - ISCHAEMIA [None]
  - BLOOD PRESSURE INADEQUATELY CONTROLLED [None]
  - DRUG INEFFECTIVE [None]
